FAERS Safety Report 4657918-4 (Version None)
Quarter: 2005Q2

REPORT INFORMATION
  Report Type: 
  Country: None (occurrence: None)
  Receive Date: 20050510
  Receipt Date: 20050505
  Transmission Date: 20051028
  Serious: Yes (Death)
  Sender: FDA-Public Use
  Company Number: US-SANOFI-SYNTHELABO-F03200500062

PATIENT
  Sex: Male

DRUGS (2)
  1. OXALIPLATIN [Suspect]
     Indication: SQUAMOUS CELL CARCINOMA
     Route: 042
  2. TAXOTERE [Suspect]
     Indication: SQUAMOUS CELL CARCINOMA
     Route: 042

REACTIONS (5)
  - CARDIOPULMONARY FAILURE [None]
  - COMA [None]
  - HYPOTENSION [None]
  - PNEUMONIA [None]
  - SINUS TACHYCARDIA [None]
